FAERS Safety Report 16955317 (Version 1)
Quarter: 2019Q4

REPORT INFORMATION
  Report Type: Spontaneous
  Country: IN (occurrence: IN)
  Receive Date: 20191023
  Receipt Date: 20191023
  Transmission Date: 20200122
  Serious: No
  Sender: FDA-Public Use
  Company Number: None

PATIENT
  Age: 50 Year
  Sex: Female
  Weight: 118.8 kg

DRUGS (12)
  1. AMLODIPINE [Concomitant]
     Active Substance: AMLODIPINE BESYLATE
  2. CYMBALTA [Concomitant]
     Active Substance: DULOXETINE HYDROCHLORIDE
  3. FLUCONAZOLE. [Suspect]
     Active Substance: FLUCONAZOLE
     Route: 048
     Dates: start: 20190709, end: 20190711
  4. RANITIDINE. [Concomitant]
     Active Substance: RANITIDINE
     Dates: start: 20160715
  5. METOPROLOL. [Concomitant]
     Active Substance: METOPROLOL
  6. PRAZOSIN. [Concomitant]
     Active Substance: PRAZOSIN
  7. LUNESTA [Concomitant]
     Active Substance: ESZOPICLONE
  8. LOSARTAN. [Concomitant]
     Active Substance: LOSARTAN
  9. TAMOXIFEN [Concomitant]
     Active Substance: TAMOXIFEN
  10. LATUDA [Concomitant]
     Active Substance: LURASIDONE HYDROCHLORIDE
  11. LEXAPRO [Concomitant]
     Active Substance: ESCITALOPRAM OXALATE
  12. LYRICA [Concomitant]
     Active Substance: PREGABALIN

REACTIONS (2)
  - Overdose [None]
  - Product use issue [None]

NARRATIVE: CASE EVENT DATE: 20190709
